FAERS Safety Report 13597437 (Version 2)
Quarter: 2017Q3

REPORT INFORMATION
  Report Type: Report from Study
  Country: US (occurrence: IN)
  Receive Date: 20170531
  Receipt Date: 20170713
  Transmission Date: 20171127
  Serious: Yes (Hospitalization)
  Sender: FDA-Public Use
  Company Number: US-SUNOVION-2017SUN002299

PATIENT
  Sex: Male
  Weight: 76 kg

DRUGS (10)
  1. SUPRADYN [Concomitant]
     Active Substance: ASCORBIC ACID\MINERALS\VITAMINS
     Dosage: UNK
  2. INDACATEROL AND GLYCOPYRROLATE [Suspect]
     Active Substance: GLYCOPYRROLATE\INDACATEROL MALEATE
     Indication: CHRONIC OBSTRUCTIVE PULMONARY DISEASE
     Dosage: 1 DF, QD (GLYCOPRRONIUM BROMIDE 50 UG/ INDACATEROL 100 UG) (SINCE 1 YEAR AGO)
     Route: 055
  3. UNICONTIN [Concomitant]
     Dosage: UNK
  4. DYTOR [Concomitant]
     Active Substance: TORSEMIDE
  5. PREDMET [Concomitant]
     Dosage: UNK
  6. ECOSPRIN AV [Concomitant]
     Dosage: UNK
  7. LEVOLIN [Concomitant]
     Dosage: UNK
  8. URIMAX [Concomitant]
     Active Substance: TAMSULOSIN HYDROCHLORIDE
     Dosage: UNK
  9. BIO D3 PLUS [Concomitant]
     Dosage: UNK
  10. PANTOCID L [Concomitant]
     Dosage: UNK

REACTIONS (5)
  - Dyspnoea [Not Recovered/Not Resolved]
  - Condition aggravated [Not Recovered/Not Resolved]
  - Hypotension [Unknown]
  - Dizziness [Unknown]
  - Drug ineffective [Not Recovered/Not Resolved]
